FAERS Safety Report 4667902-2 (Version None)
Quarter: 2005Q2

REPORT INFORMATION
  Report Type: 
  Country: None (occurrence: None)
  Receive Date: 20050520
  Receipt Date: 20050520
  Transmission Date: 20051028
  Serious: No
  Sender: FDA-Public Use
  Company Number: None

PATIENT
  Sex: Male
  Weight: 101 kg

DRUGS (4)
  1. TEMOZOLOMIDE [Suspect]
     Indication: ANAPLASTIC ASTROCYTOMA
     Dosage: 200 MG/M2 DAILY ON DAYS 1-5 OF 1ST WEEK OF RADIATION. REPEATED EVERY 28 DAYS FOR 12 CYCLES
     Dates: start: 20050314
  2. DEAXAMETHASONE [Concomitant]
  3. DILANTIN [Concomitant]
  4. GABAPENTIN [Concomitant]

REACTIONS (1)
  - STATUS EPILEPTICUS [None]
